FAERS Safety Report 4292785-2 (Version None)
Quarter: 2004Q1

REPORT INFORMATION
  Report Type: 
  Country: None (occurrence: None)
  Receive Date: 20040210
  Receipt Date: 20040130
  Transmission Date: 20041129
  Serious: Yes (Other)
  Sender: FDA-Public Use
  Company Number: JP-SHR-03-017859

PATIENT
  Age: 72 Year
  Sex: Male

DRUGS (1)
  1. PROSCOPE 40 (IOPROMIDE) INFUSION [Suspect]
     Indication: COMPUTERISED TOMOGRAM
     Dosage: 100 ML, 1 DOSE, INTRAVENOUS
     Route: 042
     Dates: start: 20031112, end: 20031112

REACTIONS (2)
  - GAIT DISTURBANCE [None]
  - SHOCK [None]
